FAERS Safety Report 7896507-5 (Version None)
Quarter: 2011Q4

REPORT INFORMATION
  Report Type: 
  Country: None (occurrence: None)
  Receive Date: 20111102
  Receipt Date: 20111026
  Transmission Date: 20120403
  Serious: Yes (Hospitalization, Other)
  Sender: FDA-Public Use
  Company Number: ADR-2011-11222

PATIENT
  Sex: Male

DRUGS (2)
  1. LIORESAL [Suspect]
     Indication: MUSCLE SPASTICITY
     Dosage: 362.4 MCG,DAILY,INTRATH
     Route: 037
  2. LIORESAL [Suspect]
     Indication: CEREBRAL PALSY
     Dosage: 362.4 MCG,DAILY,INTRATH
     Route: 037

REACTIONS (5)
  - IMPLANT SITE INFECTION [None]
  - STAPHYLOCOCCAL INFECTION [None]
  - ENTEROCOCCUS TEST POSITIVE [None]
  - IMPLANT SITE EROSION [None]
  - IMPLANT SITE HAEMATOMA [None]
